FAERS Safety Report 5921074-2 (Version None)
Quarter: 2008Q4

REPORT INFORMATION
  Report Type: 
  Country: None (occurrence: None)
  Receive Date: 20081016
  Receipt Date: 20081007
  Transmission Date: 20090506
  Serious: Yes (Other)
  Sender: FDA-Public Use
  Company Number: US-PFIZER INC-2008084633

PATIENT
  Sex: Female
  Weight: 58.181 kg

DRUGS (3)
  1. XALATAN [Suspect]
     Indication: GLAUCOMA
     Dates: end: 20080918
  2. PREDNISOLONE ACETATE [Suspect]
     Dates: start: 20080801
  3. PAXIL [Concomitant]

REACTIONS (3)
  - CATARACT [None]
  - EYE IRRITATION [None]
  - EYE PAIN [None]
